FAERS Safety Report 6447450-X (Version None)
Quarter: 2009Q4

REPORT INFORMATION
  Report Type: 
  Country: None (occurrence: None)
  Receive Date: 20091119
  Receipt Date: 20091109
  Transmission Date: 20100525
  Serious: Yes (Death, Other)
  Sender: FDA-Public Use
  Company Number: US-BAXTER-2009BH017122

PATIENT
  Age: 68 Year
  Sex: Female

DRUGS (4)
  1. DIANEAL [Suspect]
     Indication: PERITONEAL DIALYSIS
     Route: 033
     Dates: start: 20060101, end: 20091108
  2. DIANEAL [Suspect]
     Route: 033
     Dates: start: 20060101, end: 20091108
  3. DIANEAL [Suspect]
     Indication: PERITONEAL DIALYSIS
     Route: 033
     Dates: start: 20060101, end: 20091108
  4. DIANEAL [Suspect]
     Route: 033
     Dates: start: 20060101, end: 20091108

REACTIONS (4)
  - ANGIOPATHY [None]
  - CARDIAC DISORDER [None]
  - GENERAL PHYSICAL HEALTH DETERIORATION [None]
  - WHEELCHAIR USER [None]
